FAERS Safety Report 26167114 (Version 1)
Quarter: 2025Q4

REPORT INFORMATION
  Report Type: Spontaneous
  Country: US (occurrence: US)
  Receive Date: 20251217
  Receipt Date: 20251217
  Transmission Date: 20260118
  Serious: No
  Sender: SANOFI AVENTIS
  Company Number: US-SA-2025SA368547

PATIENT
  Age: 49 Year
  Sex: Male

DRUGS (4)
  1. WAYRILZ [Suspect]
     Active Substance: RILZABRUTINIB
     Indication: Immune thrombocytopenia
     Dosage: 400 MG, BID
     Route: 048
     Dates: start: 20251121
  2. ALLOPURINOL [Concomitant]
     Active Substance: ALLOPURINOL
     Dosage: UNK
  3. BUPROPION [Concomitant]
     Active Substance: BUPROPION
     Dosage: UNK
  4. OZEMPIC [Concomitant]
     Active Substance: SEMAGLUTIDE
     Dosage: UNK

REACTIONS (1)
  - Product dose omission in error [Unknown]

NARRATIVE: CASE EVENT DATE: 20251101
